FAERS Safety Report 11108782 (Version 1)
Quarter: 2015Q2

REPORT INFORMATION
  Report Type: Spontaneous
  Country: US (occurrence: None)
  Receive Date: 20150511
  Receipt Date: 20150511
  Transmission Date: 20150821
  Serious: Yes (Death, Hospitalization, Other)
  Sender: FDA-Public Use
  Company Number: 2011US0391

PATIENT
  Age: 9 Year
  Sex: Female
  Weight: 35 kg

DRUGS (8)
  1. ZYRTEC (CETIRIZINE) [Concomitant]
  2. IRON [Concomitant]
     Active Substance: IRON
  3. FOLIC ACID. [Concomitant]
     Active Substance: FOLIC ACID
  4. METHOTREXATE (METHOTREXATE) [Suspect]
     Active Substance: METHOTREXATE
     Indication: JUVENILE IDIOPATHIC ARTHRITIS
     Route: 048
  5. CIMETIDINE [Concomitant]
     Active Substance: CIMETIDINE
  6. NAPROXEN. [Concomitant]
     Active Substance: NAPROXEN
  7. KINERET [Suspect]
     Active Substance: ANAKINRA
     Indication: JUVENILE IDIOPATHIC ARTHRITIS
     Route: 058
     Dates: start: 20101102
  8. HYDROXYZINE [Concomitant]
     Active Substance: HYDROXYZINE\HYDROXYZINE HYDROCHLORIDE

REACTIONS (5)
  - Histiocytosis haematophagic [None]
  - Pyrexia [None]
  - Rash [None]
  - Sinusitis [None]
  - Viral infection [None]

NARRATIVE: CASE EVENT DATE: 20110308
